FAERS Safety Report 10404267 (Version 2)
Quarter: 2014Q2

REPORT INFORMATION
  Report Type: Spontaneous
  Country: US (occurrence: None)
  Receive Date: 20140214
  Receipt Date: 20140625
  Transmission Date: 20141212
  Serious: No
  Sender: FDA-Public Use
  Company Number: A-US2014-93709

PATIENT
  Age: 70 Year
  Sex: Female

DRUGS (1)
  1. OPSUMIT [Suspect]
     Indication: PULMONARY ARTERIAL HYPERTENSION
     Route: 048
     Dates: start: 20131211

REACTIONS (5)
  - Visual impairment [None]
  - Headache [None]
  - Abdominal pain upper [None]
  - Abdominal discomfort [None]
  - Drug dose omission [None]
